FAERS Safety Report 6068798-7 (Version None)
Quarter: 2009Q1

REPORT INFORMATION
  Report Type: 
  Country: None (occurrence: None)
  Receive Date: 20090206
  Receipt Date: 20090203
  Transmission Date: 20090719
  Serious: Yes (Other)
  Sender: FDA-Public Use
  Company Number: JP-ASTRAZENECA-2009AP00693

PATIENT
  Age: 61 Year
  Sex: Male

DRUGS (10)
  1. CRESTOR [Suspect]
     Indication: ACUTE MYOCARDIAL INFARCTION
     Route: 048
     Dates: start: 20081219, end: 20090104
  2. ASPIRIN [Concomitant]
     Route: 048
  3. PLAVIX [Concomitant]
     Indication: ACUTE CORONARY SYNDROME
     Route: 048
     Dates: start: 20081218
  4. SEROQUEL [Concomitant]
     Route: 048
     Dates: start: 20090122
  5. TAKEPRON [Concomitant]
     Dosage: DOSE UNKNOWN
     Route: 048
  6. ARTIST [Concomitant]
     Dosage: DOSE UNKNOWN
     Route: 048
  7. OLMETEC [Concomitant]
     Dosage: DOSE UNKNOWN
     Route: 048
  8. SIGMART [Concomitant]
     Dosage: DOSE UNKNOWN
     Route: 048
  9. DIGOXIN [Concomitant]
     Dosage: DOSE UNKNOWN
     Route: 048
  10. HEPARIN SODIUM [Concomitant]

REACTIONS (2)
  - HEPATIC FUNCTION ABNORMAL [None]
  - JAUNDICE [None]
